FAERS Safety Report 4375335-1 (Version None)
Quarter: 2004Q2

REPORT INFORMATION
  Report Type: 
  Country: None (occurrence: None)
  Receive Date: 20040603
  Receipt Date: 20040601
  Transmission Date: 20050107
  Serious: Yes (Hospitalization)
  Sender: FDA-Public Use
  Company Number: DEWYE777424MAY04

PATIENT
  Age: 16 Year

DRUGS (1)
  1. REFACTO [Suspect]

REACTIONS (1)
  - SURGERY [None]
